FAERS Safety Report 5060943-5 (Version None)
Quarter: 2006Q3

REPORT INFORMATION
  Report Type: 
  Country: None (occurrence: None)
  Receive Date: 20060725
  Receipt Date: 20060419
  Transmission Date: 20061208
  Serious: Yes (Death, Life-Threatening, Hospitalization)
  Sender: FDA-Public Use
  Company Number: US-SANOFI-SYNTHELABO-A03200602450

PATIENT
  Sex: Male
  Weight: 94.8 kg

DRUGS (7)
  1. ELOXATIN [Suspect]
     Indication: COLON CANCER
     Route: 042
     Dates: start: 20060215, end: 20060215
  2. CALCIUM GLUCONATE [Concomitant]
     Route: 042
     Dates: start: 20051019, end: 20060215
  3. MAGNESIUM [Concomitant]
     Route: 042
     Dates: start: 20051019, end: 20060215
  4. DECADRON [Concomitant]
     Route: 042
     Dates: start: 20051019, end: 20060215
  5. ALOXI [Concomitant]
     Route: 042
     Dates: start: 20051019, end: 20060215
  6. LEUCOVORIN CALCIUM [Concomitant]
     Route: 042
     Dates: start: 20051019, end: 20060215
  7. FLUOROURACIL [Concomitant]
     Route: 042
     Dates: start: 20051019, end: 20060215

REACTIONS (13)
  - ATRIAL FIBRILLATION [None]
  - CHILLS [None]
  - DIFFUSE ALVEOLAR DAMAGE [None]
  - DRUG TOXICITY [None]
  - GASTROINTESTINAL HAEMORRHAGE [None]
  - GENERAL PHYSICAL HEALTH DETERIORATION [None]
  - INTESTINAL ISCHAEMIA [None]
  - LUNG CONSOLIDATION [None]
  - LUNG INFILTRATION [None]
  - PNEUMONIA PRIMARY ATYPICAL [None]
  - PNEUMONITIS [None]
  - PYREXIA [None]
  - RESPIRATORY FAILURE [None]
